FAERS Safety Report 20730767 (Version 1)
Quarter: 2022Q2

REPORT INFORMATION
  Report Type: Spontaneous
  Country: US (occurrence: US)
  Receive Date: 20220420
  Receipt Date: 20220420
  Transmission Date: 20220721
  Serious: No
  Sender: FDA-Public Use
  Company Number: US-ASTELLAS-2021US014013

PATIENT
  Sex: Female

DRUGS (4)
  1. LEXISCAN [Suspect]
     Active Substance: REGADENOSON
     Indication: Scan myocardial perfusion
     Dosage: 0.4 MG, UNKNOWN FREQ. (PUSH OVER 10 SECONDS)
     Route: 042
     Dates: start: 20210428, end: 20210428
  2. LEXISCAN [Suspect]
     Active Substance: REGADENOSON
     Indication: Scan myocardial perfusion
     Dosage: 0.4 MG, UNKNOWN FREQ. (PUSH OVER 10 SECONDS)
     Route: 042
     Dates: start: 20210428, end: 20210428
  3. LEXISCAN [Suspect]
     Active Substance: REGADENOSON
     Indication: Scan myocardial perfusion
     Dosage: 0.4 MG, UNKNOWN FREQ. (PUSH OVER 10 SECONDS)
     Route: 042
     Dates: start: 20210428, end: 20210428
  4. LEXISCAN [Suspect]
     Active Substance: REGADENOSON
     Indication: Scan myocardial perfusion
     Dosage: 0.4 MG, UNKNOWN FREQ. (PUSH OVER 10 SECONDS)
     Route: 042
     Dates: start: 20210428, end: 20210428

REACTIONS (1)
  - Anal incontinence [Unknown]
